FAERS Safety Report 6324304-0 (Version None)
Quarter: 2009Q3

REPORT INFORMATION
  Report Type: 
  Country: None (occurrence: None)
  Receive Date: 20090824
  Receipt Date: 20090519
  Transmission Date: 20100115
  Serious: No
  Sender: FDA-Public Use
  Company Number: US-ABBOTT-09P-163-0574366-00

PATIENT
  Sex: Male
  Weight: 121.67 kg

DRUGS (13)
  1. NIASPAN [Suspect]
     Indication: BLOOD TRIGLYCERIDES INCREASED
     Dosage: DAILY AT BEDTIME
     Dates: start: 20090501
  2. GLIMIPRIDE [Concomitant]
     Indication: DRUG USE FOR UNKNOWN INDICATION
  3. AMARYL [Concomitant]
     Indication: DRUG USE FOR UNKNOWN INDICATION
  4. METFORMIN HCL [Concomitant]
     Indication: DRUG USE FOR UNKNOWN INDICATION
  5. AVANDIA [Concomitant]
     Indication: DRUG USE FOR UNKNOWN INDICATION
  6. BYETTA [Concomitant]
     Indication: DRUG USE FOR UNKNOWN INDICATION
  7. FISH OIL [Concomitant]
     Indication: DRUG USE FOR UNKNOWN INDICATION
  8. TRICOR [Concomitant]
     Indication: DRUG USE FOR UNKNOWN INDICATION
  9. ZETIA [Concomitant]
     Indication: DRUG USE FOR UNKNOWN INDICATION
  10. CRESTOR [Concomitant]
     Indication: DRUG USE FOR UNKNOWN INDICATION
  11. COZAAR [Concomitant]
     Indication: RENAL IMPAIRMENT
  12. CINNAMON [Concomitant]
     Indication: DRUG USE FOR UNKNOWN INDICATION
  13. CARDIO TEA PILL [Concomitant]
     Indication: DRUG USE FOR UNKNOWN INDICATION

REACTIONS (1)
  - FLUSHING [None]
